FAERS Safety Report 13958563 (Version 1)
Quarter: 2017Q3

REPORT INFORMATION
  Report Type: Spontaneous
  Country: US (occurrence: US)
  Receive Date: 20170911
  Receipt Date: 20170911
  Transmission Date: 20171128
  Serious: No
  Sender: FDA-Public Use
  Company Number: US-ROCHE-1129935

PATIENT
  Sex: Female

DRUGS (4)
  1. RITUXAN [Suspect]
     Active Substance: RITUXIMAB
     Indication: CONGENITAL NEUROPATHY
  2. RITUXAN [Suspect]
     Active Substance: RITUXIMAB
     Indication: OFF LABEL USE
  3. PREDNISONE. [Concomitant]
     Active Substance: PREDNISONE
  4. IMURAN [Concomitant]
     Active Substance: AZATHIOPRINE

REACTIONS (1)
  - Therapeutic response decreased [Unknown]
